FAERS Safety Report 16148475 (Version 1)
Quarter: 2019Q2

REPORT INFORMATION
  Report Type: Spontaneous
  Country: JP (occurrence: JP)
  Receive Date: 20190402
  Receipt Date: 20190402
  Transmission Date: 20190711
  Serious: Yes (Other)
  Sender: FDA-Public Use
  Company Number: JP-PFIZER INC-2018514566

PATIENT
  Age: 48 Year
  Sex: Female

DRUGS (6)
  1. LEUPLIN [Concomitant]
     Active Substance: LEUPROLIDE ACETATE
     Indication: BREAST CANCER RECURRENT
     Dosage: 11.25 MG, 1X/DAY
     Route: 058
     Dates: start: 201207
  2. REBAMIPIDE [Concomitant]
     Active Substance: REBAMIPIDE
     Indication: HEADACHE
     Dosage: 100 MG, 3X/DAY
     Route: 048
     Dates: start: 20180613
  3. IBRANCE [Suspect]
     Active Substance: PALBOCICLIB
     Dosage: 125 MG, 1X/DAY
     Dates: start: 20190105
  4. IBRANCE [Suspect]
     Active Substance: PALBOCICLIB
     Indication: BREAST CANCER RECURRENT
     Dosage: 125 MG, 1X/DAY
     Route: 048
     Dates: start: 20181130, end: 20181207
  5. FASLODEX [Concomitant]
     Active Substance: FULVESTRANT
     Indication: BREAST CANCER RECURRENT
     Dosage: 500 MG, 1X/DAY
     Route: 030
     Dates: start: 201810
  6. LOXOPROFEN [Concomitant]
     Active Substance: LOXOPROFEN
     Indication: HEADACHE
     Dosage: 60 MG, 3X/DAY
     Route: 048
     Dates: start: 20180613

REACTIONS (5)
  - Amylase increased [Unknown]
  - Fall [Unknown]
  - Fracture [Recovered/Resolved]
  - Cholecystitis acute [Not Recovered/Not Resolved]
  - Biliary colic [Not Recovered/Not Resolved]

NARRATIVE: CASE EVENT DATE: 20181207
